FAERS Safety Report 12701598 (Version 1)
Quarter: 2016Q3

REPORT INFORMATION
  Report Type: Spontaneous
  Country: JP (occurrence: JP)
  Receive Date: 20160831
  Receipt Date: 20160831
  Transmission Date: 20161109
  Serious: Yes (Hospitalization, Other)
  Sender: FDA-Public Use
  Company Number: JP-ROCHE-1802776

PATIENT
  Age: 69 Year
  Sex: Male
  Weight: 61 kg

DRUGS (1)
  1. AVASTIN [Suspect]
     Active Substance: BEVACIZUMAB
     Indication: LUNG ADENOCARCINOMA
     Dosage: DOSAGE IS UNCERTAIN.
     Route: 041
     Dates: start: 201404

REACTIONS (9)
  - Metastases to meninges [Unknown]
  - Abdominal lymphadenopathy [Unknown]
  - Malaise [Unknown]
  - Diverticular perforation [Recovered/Resolved]
  - Metastases to central nervous system [Unknown]
  - Anaemia [Unknown]
  - Blood alkaline phosphatase increased [Unknown]
  - Blood uric acid increased [Unknown]
  - C-reactive protein increased [Unknown]
